FAERS Safety Report 17720105 (Version 1)
Quarter: 2020Q2

REPORT INFORMATION
  Report Type: Not Available
  Country: US (occurrence: US)
  Receive Date: 20200428
  Receipt Date: 20200428
  Transmission Date: 20200714
  Serious: No
  Sender: FDA-Public Use
  Company Number: US-NEUROCRINE BIOSCIENCES INC.-2020NBI01340

PATIENT
  Sex: Male

DRUGS (14)
  1. INGREZZA [Suspect]
     Active Substance: VALBENAZINE
     Indication: PRODUCT USED FOR UNKNOWN INDICATION
     Dosage: 2X40MG
     Route: 048
  2. ESCITALOPRAM [Concomitant]
     Active Substance: ESCITALOPRAM OXALATE
  3. MELOXICAM. [Concomitant]
     Active Substance: MELOXICAM
  4. VITAMIN D [Concomitant]
     Active Substance: VITAMIN D NOS
  5. BABY ASPIRIN [Concomitant]
     Active Substance: ASPIRIN
  6. ABILIFY [Concomitant]
     Active Substance: ARIPIPRAZOLE
  7. MVI [Concomitant]
     Active Substance: VITAMINS
  8. BUPROPION. [Concomitant]
     Active Substance: BUPROPION
  9. DULOXETINE. [Concomitant]
     Active Substance: DULOXETINE
  10. FINASTERIDE. [Concomitant]
     Active Substance: FINASTERIDE
  11. SIMVASTATIN. [Concomitant]
     Active Substance: SIMVASTATIN
  12. OMEPRAZOLE. [Concomitant]
     Active Substance: OMEPRAZOLE
  13. TAMSULOSIN [Concomitant]
     Active Substance: TAMSULOSIN
  14. CELEBREX [Concomitant]
     Active Substance: CELECOXIB

REACTIONS (1)
  - Dizziness [Unknown]
